FAERS Safety Report 9492184 (Version 1)
Quarter: 2013Q3

REPORT INFORMATION
  Report Type: Spontaneous
  Country: TW (occurrence: TW)
  Receive Date: 20130830
  Receipt Date: 20130830
  Transmission Date: 20140515
  Serious: Yes (Hospitalization, Other)
  Sender: FDA-Public Use
  Company Number: TW-ACTAVIS-2013-14953

PATIENT
  Age: 86 Year
  Sex: Male

DRUGS (10)
  1. CLONAZEPAM (UNKNOWN) [Suspect]
     Indication: TREMOR
     Dosage: 0.5 MG, BID
     Route: 048
  2. ESCITALOPRAM [Concomitant]
     Indication: PRODUCT USED FOR UNKNOWN INDICATION
     Dosage: 10 MG, QPM (AT BEDTIME)
     Route: 048
  3. RISPERIDONE [Concomitant]
     Indication: PRODUCT USED FOR UNKNOWN INDICATION
     Dosage: 1 MG, QPM (AT BEDTIME)
     Route: 048
  4. DIPYRIDAMOLE [Concomitant]
     Indication: PRODUCT USED FOR UNKNOWN INDICATION
     Dosage: 25 MG, BID
     Route: 048
  5. FLUNARIZINE [Concomitant]
     Indication: PRODUCT USED FOR UNKNOWN INDICATION
     Dosage: 5 MG, QPM (AT BEDTIME)
     Route: 048
  6. DOXYCYCLINE [Concomitant]
     Indication: PSEUDOMONAS INFECTION
     Dosage: 100 MG EVERY 12 HOURS
     Route: 048
  7. DOXYCYCLINE [Concomitant]
     Indication: STENOTROPHOMONAS INFECTION
  8. AMIODARONE [Concomitant]
     Indication: PRODUCT USED FOR UNKNOWN INDICATION
     Dosage: 200 MG, TID
     Route: 048
  9. FUROSEMIDE [Concomitant]
     Indication: PRODUCT USED FOR UNKNOWN INDICATION
     Dosage: 20 MG, BID
     Route: 042
  10. CEFTAZIDIME [Concomitant]
     Indication: PNEUMONIA
     Dosage: 2 G EVERY 12 HOURS
     Route: 042

REACTIONS (3)
  - Dermatitis bullous [Recovering/Resolving]
  - Toxic epidermal necrolysis [Unknown]
  - Nikolsky^s sign [Unknown]
